FAERS Safety Report 20064439 (Version 1)
Quarter: 2021Q4

REPORT INFORMATION
  Report Type: Spontaneous
  Country: IT (occurrence: IT)
  Receive Date: 20211112
  Receipt Date: 20211112
  Transmission Date: 20220303
  Serious: Yes (Other)
  Sender: FDA-Public Use
  Company Number: IT-JNJFOC-20211045137

PATIENT
  Age: 20 Year
  Sex: Female
  Weight: 80 kg

DRUGS (5)
  1. XANAX [Suspect]
     Active Substance: ALPRAZOLAM
     Dosage: UNK
  2. TACHIPIRINA [Suspect]
     Active Substance: ACETAMINOPHEN
     Dosage: UNK
  3. ARCOXIA [Suspect]
     Active Substance: ETORICOXIB
     Dosage: UNK
  4. SPORANOX [Suspect]
     Active Substance: ITRACONAZOLE
     Dosage: UNK
  5. KETOPROFEN LYSINE [Suspect]
     Active Substance: KETOPROFEN LYSINE
     Dosage: UNK

REACTIONS (3)
  - Suicide attempt [Unknown]
  - Extra dose administered [Unknown]
  - Intentional self-injury [Unknown]
